FAERS Safety Report 5280692-8 (Version None)
Quarter: 2007Q1

REPORT INFORMATION
  Report Type: 
  Country: None (occurrence: None)
  Receive Date: 20070329
  Receipt Date: 20070319
  Transmission Date: 20070707
  Serious: Yes (Life-Threatening)
  Sender: FDA-Public Use
  Company Number: JP-BRISTOL-MYERS SQUIBB COMPANY-13672365

PATIENT
  Age: 64 Year
  Sex: Male

DRUGS (4)
  1. MITOMYCIN [Suspect]
     Indication: HEPATIC NEOPLASM MALIGNANT
     Route: 013
     Dates: start: 20010508, end: 20010508
  2. ADRIAMYCIN PFS [Suspect]
     Indication: HEPATIC NEOPLASM MALIGNANT
     Route: 013
     Dates: start: 20010508, end: 20010508
  3. LIPIODOL [Suspect]
     Indication: HEPATIC NEOPLASM MALIGNANT
     Route: 013
     Dates: start: 20010508, end: 20010508
  4. STARCH [Concomitant]
     Route: 013
     Dates: start: 20010508, end: 20010508

REACTIONS (4)
  - BILE DUCT STENOSIS [None]
  - DIABETES MELLITUS [None]
  - HEPATIC ENZYME INCREASED [None]
  - JAUNDICE [None]
